FAERS Safety Report 10548357 (Version 1)
Quarter: 2014Q4

REPORT INFORMATION
  Report Type: Spontaneous
  Country: US (occurrence: US)
  Receive Date: 20141028
  Receipt Date: 20141028
  Transmission Date: 20150529
  Serious: Yes (Other)
  Sender: FDA-Public Use
  Company Number: US-PFIZER INC-2014292693

PATIENT
  Age: 52 Year
  Sex: Female
  Weight: 68.03 kg

DRUGS (1)
  1. GABAPENTIN. [Suspect]
     Active Substance: GABAPENTIN
     Indication: SPINAL DISORDER
     Dosage: UNK, 2X/DAY
     Dates: end: 2013

REACTIONS (3)
  - Muscle twitching [Unknown]
  - Seizure [Unknown]
  - Dyskinesia [Unknown]

NARRATIVE: CASE EVENT DATE: 2013
